FAERS Safety Report 15158218 (Version 2)
Quarter: 2018Q3

REPORT INFORMATION
  Report Type: Spontaneous
  Country: ZA (occurrence: ZA)
  Receive Date: 20180718
  Receipt Date: 20180725
  Transmission Date: 20181010
  Serious: Yes (Hospitalization)
  Sender: FDA-Public Use
  Company Number: ZA-TEVA-2018-ZA-925535

PATIENT
  Age: 66 Year
  Sex: Male
  Weight: 80 kg

DRUGS (1)
  1. ABITREXATE 2.5 MG [Suspect]
     Active Substance: METHOTREXATE SODIUM
     Indication: LYMPHOMATOID PAPULOSIS
     Dosage: 12.5MG STAT DOSE
     Route: 048
     Dates: start: 20180613

REACTIONS (9)
  - Overdose [Recovered/Resolved]
  - Nausea [Recovered/Resolved]
  - Mucosal necrosis [Recovered/Resolved]
  - Skin reaction [Recovered/Resolved]
  - Communication disorder [Recovered/Resolved]
  - Acute kidney injury [Recovered/Resolved]
  - Neurotoxicity [Recovered/Resolved]
  - Vomiting [Recovered/Resolved]
  - Feeding disorder [Recovered/Resolved]

NARRATIVE: CASE EVENT DATE: 20180613
